FAERS Safety Report 10217897 (Version 1)
Quarter: 2014Q2

REPORT INFORMATION
  Report Type: Spontaneous
  Country: US (occurrence: US)
  Receive Date: 20140605
  Receipt Date: 20140605
  Transmission Date: 20141212
  Serious: No
  Sender: FDA-Public Use
  Company Number: US-009507513-1406USA001423

PATIENT
  Sex: 0

DRUGS (2)
  1. CLARITIN-D [Suspect]
     Indication: RHINORRHOEA
     Dosage: UNK UNK, UNKNOWN
     Route: 048
     Dates: start: 20140530, end: 20140530
  2. CLARITIN-D [Suspect]
     Dosage: UNK, UNKNOWN
     Route: 048

REACTIONS (3)
  - Rhinorrhoea [Unknown]
  - Drug effect incomplete [Unknown]
  - Drug ineffective [Unknown]
